FAERS Safety Report 17986479 (Version 2)
Quarter: 2020Q3

REPORT INFORMATION
  Report Type: Spontaneous
  Country: US (occurrence: US)
  Receive Date: 20200707
  Receipt Date: 20200828
  Transmission Date: 20201103
  Serious: No
  Sender: FDA-Public Use
  Company Number: US-ALEXION-A202009281

PATIENT
  Age: 9 Year
  Sex: Female

DRUGS (1)
  1. KANUMA [Suspect]
     Active Substance: SEBELIPASE ALFA
     Indication: LYSOSOMAL ACID LIPASE DEFICIENCY
     Dosage: 1 MG/KG EVERY OTHER WEEK
     Route: 042
     Dates: start: 201911

REACTIONS (2)
  - Transaminases decreased [Unknown]
  - Lipids decreased [Unknown]
